FAERS Safety Report 20603082 (Version 4)
Quarter: 2023Q1

REPORT INFORMATION
  Report Type: Report from Study
  Country: DE (occurrence: None)
  Receive Date: 20220316
  Receipt Date: 20230106
  Transmission Date: 20230418
  Serious: Yes (Hospitalization)
  Sender: FDA-Public Use
  Company Number: DE-ROCHE-3044523

PATIENT
  Age: 40 Year
  Sex: Female
  Weight: 60 kg

DRUGS (16)
  1. ATEZOLIZUMAB [Suspect]
     Active Substance: ATEZOLIZUMAB
     Indication: Triple negative breast cancer
     Dosage: ON 14/JAN/2022, SHE RECEIVED LAST DOSE PRIOR TO SERIOUS ADVERSE EVENT.
     Route: 041
     Dates: start: 20210909
  2. PACLITAXEL [Suspect]
     Active Substance: PACLITAXEL
     Indication: Triple negative breast cancer
     Dosage: ON 18/NOV/2021, SHE RECEIVED LAST DOSE PRIOR TO SERIOUS ADVERSE EVENT.
     Route: 042
     Dates: start: 20210909
  3. CYCLOPHOSPHAMIDE [Suspect]
     Active Substance: CYCLOPHOSPHAMIDE
     Indication: Triple negative breast cancer
     Dosage: 14/JAN/2022, SHE RECEIVED LAST DOSE PRIOR TO SERIOUS ADVERSE EVENT.
     Route: 042
     Dates: start: 20211202
  4. CARBOPLATIN [Suspect]
     Active Substance: CARBOPLATIN
     Indication: Triple negative breast cancer
     Dosage: ON 18/NOV/2021, SHE RECEIVED LAST DOSE PRIOR TO SERIOUS ADVERSE EVENT.
     Route: 042
     Dates: start: 20210909
  5. EPIRUBICIN [Suspect]
     Active Substance: EPIRUBICIN
     Indication: Triple negative breast cancer
     Dosage: ON 14/JAN/2022, HE RECIVED LAST DOSE PRIOR TO SERIOUS ADVERSE EVENT.
     Route: 042
     Dates: start: 20211202
  6. PIPERACILLIN SODIUM\TAZOBACTAM SODIUM [Concomitant]
     Active Substance: PIPERACILLIN SODIUM\TAZOBACTAM SODIUM
     Dates: start: 20211125
  7. TRIAMCINOLONACETONID [Concomitant]
     Dates: start: 20211111, end: 20211214
  8. PIPERACILLIN [Concomitant]
     Active Substance: PIPERACILLIN
     Dates: start: 20211209, end: 20211212
  9. PIPERACILLIN [Concomitant]
     Active Substance: PIPERACILLIN
     Dates: start: 20211230, end: 20220105
  10. TAZOBACTAM [Concomitant]
     Active Substance: TAZOBACTAM
     Dates: start: 20211209, end: 20211212
  11. TAZOBACTAM [Concomitant]
     Active Substance: TAZOBACTAM
     Dates: start: 20211230, end: 20220105
  12. AMPICILLIN [Concomitant]
     Active Substance: AMPICILLIN
     Dates: start: 20211212, end: 20211213
  13. SULBACTAM [Concomitant]
     Active Substance: SULBACTAM
     Dates: start: 20211212, end: 20211213
  14. AMOXICILLIN [Concomitant]
     Active Substance: AMOXICILLIN
     Dates: start: 20211214, end: 20211219
  15. CLAVULANIC ACID [Concomitant]
     Active Substance: CLAVULANIC ACID
     Dates: start: 20211214, end: 20211219
  16. POTASSIUM [Concomitant]
     Active Substance: POTASSIUM
     Dates: start: 20211209, end: 20211219

REACTIONS (1)
  - Hepatotoxicity [Recovered/Resolved]

NARRATIVE: CASE EVENT DATE: 20220203
